FAERS Safety Report 17024305 (Version 1)
Quarter: 2019Q4

REPORT INFORMATION
  Report Type: Spontaneous
  Country: SE (occurrence: SE)
  Receive Date: 20191113
  Receipt Date: 20191113
  Transmission Date: 20200122
  Serious: Yes (Hospitalization, Other)
  Sender: FDA-Public Use
  Company Number: SE-TEVA-2019-SE-1136459

PATIENT
  Age: 63 Year
  Sex: Female

DRUGS (12)
  1. TROMBYL [Concomitant]
     Active Substance: ASPIRIN
     Dosage: 75 MG, UNKNOWN
  2. GEMZAR [Suspect]
     Active Substance: GEMCITABINE HYDROCHLORIDE
     Dosage: GEMZAR POWDER FOR SOLUTION FOR INFUSION
     Dates: start: 200901
  3. NICOTTINEL [Concomitant]
     Dosage: 1DF=21MG/24 TIMMAR;TRANSDERMAL PATCH
     Route: 062
  4. OXYCONTIN [Concomitant]
     Active Substance: OXYCODONE HYDROCHLORIDE
     Dosage: OXYCONTIN PROLONGED-RELEASE TABLET: 10 MILLIGRAM
  5. ONDANSETRON [Concomitant]
     Active Substance: ONDANSETRON
  6. CARBOPLATIN. [Suspect]
     Active Substance: CARBOPLATIN
     Indication: LUNG NEOPLASM MALIGNANT
     Route: 065
     Dates: start: 200901
  7. PREDNISOLONE. [Concomitant]
     Active Substance: PREDNISOLONE
  8. ATROVENT [Concomitant]
     Active Substance: IPRATROPIUM BROMIDE
  9. PANODIL [Concomitant]
     Active Substance: ACETAMINOPHEN
     Dosage: PANODIL FILM-COATED TABLET 500 MG
  10. OMEPRAZOLE. [Concomitant]
     Active Substance: OMEPRAZOLE
  11. OXASCAND [Concomitant]
     Active Substance: OXAZEPAM
     Dosage: OXASCAND TABLET 5 MILLIGRAM
  12. HEPARIN LEO [Concomitant]
     Active Substance: HEPARIN SODIUM
     Dosage: HEPARIN LEO

REACTIONS (2)
  - Bacterial infection [Unknown]
  - Pancytopenia [Recovered/Resolved]

NARRATIVE: CASE EVENT DATE: 200902
